FAERS Safety Report 8510760-6 (Version None)
Quarter: 2012Q3

REPORT INFORMATION
  Report Type: 
  Country: None (occurrence: None)
  Receive Date: 20120716
  Receipt Date: 20120709
  Transmission Date: 20120928
  Serious: Yes (Hospitalization)
  Sender: FDA-Public Use
  Company Number: US-PFIZER INC-2012165195

PATIENT
  Sex: Female

DRUGS (8)
  1. GEODON [Suspect]
  2. EFFEXOR [Suspect]
  3. XANAX [Suspect]
  4. LITHIUM [Suspect]
  5. LETAIRIS [Suspect]
     Indication: PULMONARY HYPERTENSION
     Dosage: 10 MG, 1X/DAY
     Route: 048
     Dates: start: 20100730
  6. SEROQUEL [Suspect]
  7. VICODIN [Suspect]
  8. CELEXA [Suspect]

REACTIONS (1)
  - SYNCOPE [None]
